FAERS Safety Report 5863385-5 (Version None)
Quarter: 2008Q3

REPORT INFORMATION
  Report Type: 
  Country: None (occurrence: None)
  Receive Date: 20080828
  Receipt Date: 20080821
  Transmission Date: 20090109
  Serious: Yes (Other)
  Sender: FDA-Public Use
  Company Number: PHBS2008IL05478

PATIENT
  Age: 5 Year
  Sex: Male

DRUGS (10)
  1. CYCLOSPORINE [Suspect]
     Indication: PROPHYLAXIS AGAINST GRAFT VERSUS HOST DISEASE
     Dosage: 3 MG/KG
  2. CYCLOSPORINE [Suspect]
     Indication: CORD BLOOD TRANSPLANT THERAPY
  3. CYCLOSPORINE [Suspect]
     Indication: BONE MARROW TRANSPLANT
  4. THYMOGLOBULIN [Suspect]
  5. THYMOGLOBULIN [Concomitant]
     Dosage: 2.5 MG/KG/DAY
  6. FLUDARABINE [Concomitant]
     Dosage: 180 MG/KG
  7. CYCLOPHOSPHAMIDE [Concomitant]
     Dosage: 120 MG/KG
  8. ATGAM [Concomitant]
     Indication: PROPHYLAXIS AGAINST GRAFT VERSUS HOST DISEASE
     Dosage: 60 MG/KG
  9. PLATELETS [Concomitant]
  10. RED BLOOD CELLS [Concomitant]

REACTIONS (13)
  - ENTEROBACTER INFECTION [None]
  - MUCORMYCOSIS [None]
  - OSTEOLYSIS [None]
  - OSTEOMYELITIS [None]
  - PAIN IN EXTREMITY [None]
  - PYREXIA [None]
  - RHINORRHOEA [None]
  - SEPSIS [None]
  - SERUM SICKNESS [None]
  - SINUSITIS [None]
  - STAPHYLOCOCCAL INFECTION [None]
  - SWELLING FACE [None]
  - SYSTEMIC MYCOSIS [None]
